FAERS Safety Report 9275515 (Version 1)
Quarter: 2013Q1

REPORT INFORMATION
  Report Type: Spontaneous
  Country: JP (occurrence: None)
  Receive Date: 20121109
  Receipt Date: 20121109
  Transmission Date: 20140127
  Serious: Yes (Other)
  Sender: FDA-Public Use
  Company Number: 2012S1000624

PATIENT
  Sex: 0

DRUGS (1)
  1. CUBICIN [Suspect]
     Dosage: U; UNK;IV
     Route: 042

REACTIONS (1)
  - Haemoptysis [None]
